FAERS Safety Report 5047052-6 (Version None)
Quarter: 2006Q3

REPORT INFORMATION
  Report Type: 
  Country: None (occurrence: None)
  Receive Date: 20060703
  Receipt Date: 20060620
  Transmission Date: 20061208
  Serious: Yes (Disabling, Other)
  Sender: FDA-Public Use
  Company Number: 2006078592

PATIENT
  Sex: Female
  Weight: 72.5755 kg

DRUGS (5)
  1. CELEBREX [Suspect]
     Indication: ARTHRITIS
     Dosage: 200 MG (200 MG, 1 IN 1 D)
     Dates: end: 20060101
  2. CELEBREX [Suspect]
     Indication: OSTEOPOROSIS
     Dosage: 200 MG (200 MG, 1 IN 1 D)
     Dates: end: 20060101
  3. BEXTRA [Suspect]
     Indication: PAIN
     Dosage: 20 MG (20 MG, 1 IN 1 D)
     Dates: start: 20031001
  4. VITAMINS (VITAMINS) [Concomitant]
  5. ADVIL [Concomitant]

REACTIONS (8)
  - BLINDNESS [None]
  - BLOOD PRESSURE INCREASED [None]
  - DIZZINESS [None]
  - FLUSHING [None]
  - MACULAR DEGENERATION [None]
  - MUSCULOSKELETAL CHEST PAIN [None]
  - PAIN [None]
  - VISUAL ACUITY REDUCED [None]
